FAERS Safety Report 12664279 (Version 2)
Quarter: 2016Q3

REPORT INFORMATION
  Report Type: Spontaneous
  Country: ES (occurrence: ES)
  Receive Date: 20160818
  Receipt Date: 20160818
  Transmission Date: 20161109
  Serious: Yes (Hospitalization, Other)
  Sender: FDA-Public Use
  Company Number: ES-MYLANLABS-2016M1033711

PATIENT
  Age: 49 Year
  Sex: Male

DRUGS (5)
  1. DIPYRONE [Suspect]
     Active Substance: DIPYRONE
     Indication: INFLUENZA
     Dosage: LATER DOSE INCREASED
     Route: 048
  2. GEMFIBROZIL. [Suspect]
     Active Substance: GEMFIBROZIL
     Indication: HYPERTRIGLYCERIDAEMIA
     Dosage: UNK
     Route: 065
  3. VALSARTAN. [Suspect]
     Active Substance: VALSARTAN
     Indication: HYPERTENSION
     Dosage: INITIAL DOSE UNKNOWN, LATER DOSE INCREASED
     Route: 065
  4. PARACETAMOL [Suspect]
     Active Substance: ACETAMINOPHEN
     Indication: ANALGESIC THERAPY
     Dosage: UNK
     Route: 065
  5. DIPYRONE [Suspect]
     Active Substance: DIPYRONE
     Indication: ANALGESIC THERAPY

REACTIONS (3)
  - Renal tubular necrosis [Recovered/Resolved]
  - Acute kidney injury [Recovered/Resolved]
  - Tubulointerstitial nephritis [Recovered/Resolved]
